FAERS Safety Report 12753607 (Version 10)
Quarter: 2020Q3

REPORT INFORMATION
  Report Type: Spontaneous
  Country: US (occurrence: US)
  Receive Date: 20160916
  Receipt Date: 20200803
  Transmission Date: 20201102
  Serious: Yes (Hospitalization, Other)
  Sender: FDA-Public Use
  Company Number: US-PFIZER INC-2016433788

PATIENT
  Age: 45 Year
  Sex: Female
  Weight: 160 kg

DRUGS (3)
  1. LYRICA [Suspect]
     Active Substance: PREGABALIN
     Indication: NEUROPATHY PERIPHERAL
     Dosage: 200 MG, 2X/DAY
     Route: 048
  2. LYRICA [Suspect]
     Active Substance: PREGABALIN
     Dosage: 475 MG, DAILY (75 MG AT AFTERNOON; AFTER MORNING DOSE 200 MG + BEFORE EVENING DOSE OF 200MG)
     Route: 048
  3. LYRICA [Suspect]
     Active Substance: PREGABALIN
     Dosage: 75 MG, UNK
     Route: 048

REACTIONS (7)
  - Thinking abnormal [Unknown]
  - Cerebrovascular accident [Unknown]
  - Pain [Unknown]
  - Somnolence [Unknown]
  - Insomnia [Unknown]
  - Malaise [Unknown]
  - Sensitivity to weather change [Unknown]

NARRATIVE: CASE EVENT DATE: 20170114
